FAERS Safety Report 8670270 (Version 2)
Quarter: 2012Q4

REPORT INFORMATION
  Report Type: 
  Country: JP (occurrence: JP)
  Receive Date: 20120718
  Receipt Date: 20121126
  Transmission Date: 20130627
  Serious: Yes (Hospitalization, Other)
  Sender: FDA-Public Use
  Company Number: JP-ROCHE-1086080

PATIENT
  Age: 61 None
  Sex: Male
  Weight: 53 kg

DRUGS (24)
  1. AVASTIN [Suspect]
     Indication: COLON CANCER RECURRENT
     Route: 041
     Dates: start: 20100927, end: 20120118
  2. AVASTIN [Suspect]
     Indication: COLON CANCER RECURRENT
     Route: 041
     Dates: start: 20120613, end: 20120815
  3. ELPLAT [Suspect]
     Indication: COLON CANCER RECURRENT
     Route: 041
     Dates: start: 20120201
  4. IRINOTECAN HYDROCHLORIDE [Concomitant]
     Indication: COLON CANCER RECURRENT
     Dosage: Drug reported as : IRINOTECAN HYDROCHLORIDE HYDRATE, Dosage is uncertain.
     Route: 041
     Dates: start: 20100927, end: 20120118
  5. LEVOFOLINATE [Concomitant]
     Indication: COLON CANCER RECURRENT
     Dosage: Dosage is uncertain.
     Route: 041
     Dates: start: 20100927, end: 20120118
  6. LEVOFOLINATE [Concomitant]
     Indication: COLON CANCER RECURRENT
     Route: 041
     Dates: start: 20120201
  7. 5-FU [Concomitant]
     Indication: LARGE INTESTINE CARCINOMA
     Dosage: Dosage is uncertain.
     Route: 040
  8. 5-FU [Concomitant]
     Indication: LARGE INTESTINE CARCINOMA
     Dosage: Dosage is uncertain.
     Route: 041
  9. 5-FU [Concomitant]
     Indication: COLON CANCER RECURRENT
     Dosage: Dosage is uncertain.
     Route: 040
     Dates: start: 20100927, end: 20120118
  10. 5-FU [Concomitant]
     Indication: COLON CANCER RECURRENT
     Dosage: Dosage is uncertain.
     Route: 041
     Dates: start: 20100927, end: 20120118
  11. 5-FU [Concomitant]
     Indication: COLON CANCER RECURRENT
     Route: 040
     Dates: start: 20120201
  12. 5-FU [Concomitant]
     Indication: COLON CANCER RECURRENT
     Route: 041
     Dates: start: 20120201
  13. ALOXI [Concomitant]
     Dosage: Dosage during a day: 1Vx once
     Route: 065
     Dates: start: 20120613
  14. EMEND [Concomitant]
     Route: 048
     Dates: start: 20120613
  15. EMEND [Concomitant]
     Route: 048
     Dates: start: 20120614, end: 20120615
  16. PRIMPERAN (JAPAN) [Concomitant]
     Route: 048
     Dates: start: 20120613
  17. NOVAMIN [Concomitant]
     Route: 048
     Dates: start: 20120613
  18. COCARL [Concomitant]
     Route: 048
     Dates: start: 20120613
  19. SELBEX [Concomitant]
     Route: 048
     Dates: start: 20120613
  20. LYRICA [Concomitant]
     Route: 048
     Dates: start: 20120613
  21. LAC-B [Concomitant]
     Route: 048
     Dates: start: 20120613
  22. OXINORM (JAPAN) [Concomitant]
     Dosage: When it is painful
     Route: 048
     Dates: start: 20120613
  23. DUROTEP [Concomitant]
     Dosage: It pastes every three days (For about 72 hours) or is a site one piece times of 
food: Thoracic par
     Route: 062
  24. LOPEMIN [Concomitant]
     Route: 048
     Dates: start: 20120613

REACTIONS (2)
  - Interstitial lung disease [Recovered/Resolved]
  - Neurotoxicity [Unknown]
